FAERS Safety Report 8367088-7 (Version None)
Quarter: 2012Q2

REPORT INFORMATION
  Report Type: 
  Country: None (occurrence: None)
  Receive Date: 20120517
  Receipt Date: 20120508
  Transmission Date: 20120825
  Serious: Yes (Other)
  Sender: FDA-Public Use
  Company Number: CH-ASTRAZENECA-2012SE29779

PATIENT
  Age: 37 Year
  Sex: Female

DRUGS (8)
  1. SYMBICORT [Suspect]
     Indication: BRONCHITIS
     Dosage: UNKNOWN DOSE TWO TIMES A DAY
     Route: 055
     Dates: start: 20111217, end: 20111218
  2. RESYL PLUS [Suspect]
     Indication: BRONCHITIS
     Dosage: THREE TIMES A DAY
     Dates: start: 20111217, end: 20111219
  3. NOVALGINE [Suspect]
     Indication: BRONCHITIS
     Dosage: TWO TIMES A DAY
     Dates: start: 20111217, end: 20111220
  4. VOLTAREN [Suspect]
     Indication: BRONCHITIS
     Dosage: ONCE DAILY
     Dates: start: 20111217, end: 20111201
  5. ACETAMINOPHEN [Suspect]
     Indication: BRONCHITIS
     Dosage: FOUR TIMES A DAY
     Dates: start: 20111217
  6. MYDOCALM [Suspect]
     Indication: BRONCHITIS
     Dosage: FIVE TIMES A DAY
     Dates: start: 20111217, end: 20111221
  7. IBUPROFEN TABLETS [Suspect]
     Indication: BRONCHITIS
     Dosage: FOUR TIMES A DAY
     Dates: start: 20111217
  8. SOLMUCOL [Suspect]
     Indication: BRONCHITIS
     Dosage: TWO TIMES A DAY
     Dates: start: 20111217, end: 20111219

REACTIONS (2)
  - ABORTION SPONTANEOUS [None]
  - MATERNAL EXPOSURE DURING PREGNANCY [None]
